FAERS Safety Report 6265939-3 (Version None)
Quarter: 2009Q3

REPORT INFORMATION
  Report Type: 
  Country: None (occurrence: None)
  Receive Date: 20090709
  Receipt Date: 20090709
  Transmission Date: 20100115
  Serious: Yes (Hospitalization)
  Sender: FDA-Public Use
  Company Number: None

PATIENT
  Age: 84 Year
  Sex: Female
  Weight: 55.6 kg

DRUGS (14)
  1. REMEROL [Suspect]
     Dosage: OTO PO  ONE DOSE SIX DAYS EARLIER
     Route: 048
  2. DUONEB [Concomitant]
  3. VIT C [Concomitant]
  4. ASPIRIN [Concomitant]
  5. CENTRUM SILVER [Concomitant]
  6. DIOVAN [Concomitant]
  7. FISH OIL [Concomitant]
  8. IBUPROFEN [Concomitant]
  9. MEGESTROL ACETATE [Concomitant]
  10. METOPROLOL TARTRATE [Concomitant]
  11. PROTONIX [Concomitant]
  12. VICODIN [Concomitant]
  13. VIT E [Concomitant]
  14. XANAX [Concomitant]

REACTIONS (3)
  - AGITATION [None]
  - CONDITION AGGRAVATED [None]
  - CONFUSIONAL STATE [None]
